FAERS Safety Report 23035454 (Version 15)
Quarter: 2024Q4

REPORT INFORMATION
  Report Type: Report from Study
  Country: CA (occurrence: CA)
  Receive Date: 20231006
  Receipt Date: 20241008
  Transmission Date: 20250114
  Serious: Yes (Other)
  Sender: JOHNSON AND JOHNSON
  Company Number: CA-JNJFOC-20230861309

PATIENT
  Age: 67 Year
  Sex: Female
  Weight: 64 kg

DRUGS (11)
  1. REMICADE [Suspect]
     Active Substance: INFLIXIMAB
     Indication: Colitis ulcerative
     Route: 041
     Dates: start: 20230815
  2. REMICADE [Suspect]
     Active Substance: INFLIXIMAB
     Route: 041
     Dates: start: 2023
  3. REMICADE [Suspect]
     Active Substance: INFLIXIMAB
     Dosage: STRENGTH: 5 MG/KG
     Route: 041
     Dates: start: 2023
  4. REMICADE [Suspect]
     Active Substance: INFLIXIMAB
     Dosage: STRENGTH: 5 MG/KG
     Route: 041
     Dates: start: 20230815
  5. REMICADE [Suspect]
     Active Substance: INFLIXIMAB
     Route: 041
     Dates: start: 20230815
  6. REMICADE [Suspect]
     Active Substance: INFLIXIMAB
     Route: 041
  7. DICLOFENAC [Concomitant]
     Active Substance: DICLOFENAC
  8. LETROZOLE [Concomitant]
     Active Substance: LETROZOLE
  9. ERGOCALCIFEROL [Concomitant]
     Active Substance: ERGOCALCIFEROL
  10. ZOLEDRONIC ACID [Concomitant]
     Active Substance: ZOLEDRONIC ACID
  11. CALCIUM\CHOLECALCIFEROL [Concomitant]
     Active Substance: CALCIUM\CHOLECALCIFEROL

REACTIONS (13)
  - Breast cancer [Not Recovered/Not Resolved]
  - Colitis ulcerative [Unknown]
  - Diverticulitis [Recovered/Resolved]
  - Nasopharyngitis [Recovering/Resolving]
  - Cystitis [Recovered/Resolved]
  - Vertigo [Unknown]
  - Headache [Recovering/Resolving]
  - Fatigue [Unknown]
  - Therapeutic response shortened [Unknown]
  - Skin discolouration [Unknown]
  - Gastrooesophageal reflux disease [Unknown]
  - Cough [Not Recovered/Not Resolved]
  - Off label use [Unknown]

NARRATIVE: CASE EVENT DATE: 20230801
